FAERS Safety Report 16190002 (Version 1)
Quarter: 2019Q2

REPORT INFORMATION
  Report Type: Spontaneous
  Country: US (occurrence: US)
  Receive Date: 20190411
  Receipt Date: 20190411
  Transmission Date: 20190711
  Serious: Yes (Hospitalization)
  Sender: FDA-Public Use
  Company Number: None

PATIENT
  Age: 69 Year
  Sex: Male

DRUGS (4)
  1. FORTEO [Suspect]
     Active Substance: TERIPARATIDE
     Indication: OSTEOARTHRITIS
     Route: 058
     Dates: start: 20170126
  2. FOLIC ACID. [Suspect]
     Active Substance: FOLIC ACID
  3. ELIQUIS [Suspect]
     Active Substance: APIXABAN
  4. ATORVASTATIN [Suspect]
     Active Substance: ATORVASTATIN

REACTIONS (5)
  - Syncope [None]
  - Hernia hiatus repair [None]
  - Unresponsive to stimuli [None]
  - Therapy cessation [None]
  - Atrial fibrillation [None]
